FAERS Safety Report 21524413 (Version 3)
Quarter: 2023Q1

REPORT INFORMATION
  Report Type: Report from Study
  Country: US (occurrence: US)
  Receive Date: 20221029
  Receipt Date: 20230104
  Transmission Date: 20230417
  Serious: No
  Sender: FDA-Public Use
  Company Number: US-NOVARTISTESTPH-NVSC2022US242285

PATIENT
  Sex: Female

DRUGS (1)
  1. PIQRAY [Suspect]
     Active Substance: ALPELISIB
     Indication: Product used for unknown indication
     Dosage: UNK
     Route: 048

REACTIONS (14)
  - Glossitis [Unknown]
  - Thirst [Unknown]
  - Temporomandibular joint syndrome [Unknown]
  - Pain in jaw [Unknown]
  - Hypoaesthesia [Unknown]
  - Disease progression [Unknown]
  - Dry mouth [Unknown]
  - Diarrhoea [Unknown]
  - Weight decreased [Recovered/Resolved with Sequelae]
  - Pruritus [Unknown]
  - Stomatitis [Unknown]
  - Fatigue [Unknown]
  - Decreased appetite [Unknown]
  - Rash [Unknown]
